FAERS Safety Report 20048148 (Version 1)
Quarter: 2021Q4

REPORT INFORMATION
  Report Type: Spontaneous
  Country: US (occurrence: None)
  Receive Date: 20211109
  Receipt Date: 20211109
  Transmission Date: 20220303
  Serious: No
  Sender: FDA-Public Use
  Company Number: 2021A781789

PATIENT
  Age: 84 Year
  Sex: Male
  Weight: 90.7 kg

DRUGS (4)
  1. CALQUENCE [Suspect]
     Active Substance: ACALABRUTINIB
     Indication: Non-Hodgkin^s lymphoma stage IV
     Dosage: 1, EVERY 12 HOURS
     Route: 048
     Dates: start: 20210706
  2. ASPIRIN [Concomitant]
     Active Substance: ASPIRIN
  3. PEPCID [Concomitant]
     Active Substance: FAMOTIDINE
  4. CALCIUM [Concomitant]
     Active Substance: CALCIUM

REACTIONS (2)
  - Skin discolouration [Not Recovered/Not Resolved]
  - Peripheral swelling [Not Recovered/Not Resolved]

NARRATIVE: CASE EVENT DATE: 20211001
